FAERS Safety Report 13243423 (Version 1)
Quarter: 2017Q1

REPORT INFORMATION
  Report Type: Spontaneous
  Country: US (occurrence: US)
  Receive Date: 20170216
  Receipt Date: 20170216
  Transmission Date: 20170428
  Serious: No
  Sender: FDA-Public Use
  Company Number: US-MALLINCKRODT-T201600503

PATIENT
  Age: 49 Year
  Sex: Male

DRUGS (2)
  1. INOMAX [Suspect]
     Active Substance: NITRIC OXIDE
     Indication: VENTRICULAR ASSIST DEVICE INSERTION
     Dosage: UNK
  2. MILRINONE [Concomitant]
     Active Substance: MILRINONE
     Dosage: 0.75 MCG/KG/MIN
     Route: 041

REACTIONS (1)
  - Off label use [Unknown]
